FAERS Safety Report 20390796 (Version 3)
Quarter: 2022Q1

REPORT INFORMATION
  Report Type: Spontaneous
  Country: JP (occurrence: JP)
  Receive Date: 20220128
  Receipt Date: 20220307
  Transmission Date: 20220423
  Serious: Yes (Death, Life-Threatening, Hospitalization, Other)
  Sender: FDA-Public Use
  Company Number: JP-GSKNCCC-Case-01405467_AE-54137

PATIENT
  Age: 93 Year
  Sex: Male
  Weight: 39.4 kg

DRUGS (5)
  1. SOTROVIMAB [Suspect]
     Active Substance: SOTROVIMAB
     Indication: COVID-19
     Dosage: 300 MG
     Route: 041
     Dates: start: 20220123, end: 20220123
  2. POTASSIUM CHLORIDE [Concomitant]
     Active Substance: POTASSIUM CHLORIDE
     Dosage: 1 G, TID
     Dates: start: 20220114
  3. SODIUM CHLORIDE [Concomitant]
     Active Substance: SODIUM CHLORIDE
     Dosage: 1 G, TID
     Dates: start: 20220117
  4. LANSOPRAZOLE [Concomitant]
     Active Substance: LANSOPRAZOLE
     Indication: Gastric ulcer
     Dosage: 30 MG, QD,IN THE MORNING
     Dates: start: 20220119, end: 20220204
  5. AZOSEMIDE [Concomitant]
     Active Substance: AZOSEMIDE
     Indication: Cardiac failure
     Dosage: 60 MG, QD,IN THE MORNING
     Route: 048
     Dates: start: 20220121, end: 20220124

REACTIONS (10)
  - Cardiac failure chronic [Fatal]
  - Tachycardia [Recovering/Resolving]
  - Arrhythmia [Unknown]
  - Atrial fibrillation [Recovering/Resolving]
  - Shock [Unknown]
  - Blood pressure increased [Unknown]
  - Pyrexia [Recovering/Resolving]
  - Blood pressure decreased [Unknown]
  - Inflammation [Unknown]
  - Prescribed underdose [Unknown]

NARRATIVE: CASE EVENT DATE: 20220123
